FAERS Safety Report 24355677 (Version 1)
Quarter: 2024Q3

REPORT INFORMATION
  Report Type: Spontaneous
  Country: US (occurrence: US)
  Receive Date: 20240924
  Receipt Date: 20240924
  Transmission Date: 20241017
  Serious: No
  Sender: CIPLA
  Company Number: US-CIPLA LTD.-2023US06593

PATIENT

DRUGS (5)
  1. DICLOFENAC [Suspect]
     Active Substance: DICLOFENAC
     Indication: Peripheral swelling
     Dosage: 4 GRAM, BID, TOPICAL ROUTE ON KNEES
     Route: 061
     Dates: start: 20231004
  2. MELOXICAM [Concomitant]
     Active Substance: MELOXICAM
     Indication: Pain
     Dosage: 7.5 MILLIGRAM, BID (7.5 MG/1 TABLET, TWICE A DAY)
     Route: 065
     Dates: start: 20231005, end: 20231007
  3. OMEPRAZOLE [Concomitant]
     Active Substance: OMEPRAZOLE
     Indication: Pain
     Dosage: 20 GRAM, BID (20 GRAM, 1 TABLET, TWICE A DAY)
     Route: 065
     Dates: start: 20231005
  4. IRBESARTAN [Concomitant]
     Active Substance: IRBESARTAN
     Indication: Blood pressure abnormal
     Dosage: 150 MILLIGRAM, QD (150 MG/1 TABLET, ONCE A DAY,STARTED TAKING IT LONG TIME AGO)
     Route: 065
  5. LEVOTHYROXINE [Concomitant]
     Active Substance: LEVOTHYROXINE\LEVOTHYROXINE SODIUM
     Indication: Thyroid disorder
     Dosage: 100 MILLIGRAM, QD(100 MG/1 TABLET, ONCE A DAY, STARTED TAKING IT LONG TIME AGO)
     Route: 065

REACTIONS (2)
  - Arthralgia [Recovering/Resolving]
  - Off label use [Unknown]

NARRATIVE: CASE EVENT DATE: 20231004
